FAERS Safety Report 23395733 (Version 1)
Quarter: 2024Q1

REPORT INFORMATION
  Report Type: Report from Study
  Country: US (occurrence: None)
  Receive Date: 20240112
  Receipt Date: 20240112
  Transmission Date: 20240409
  Serious: Yes (Death, Other)
  Sender: FDA-Public Use
  Company Number: 2024A008147

PATIENT
  Age: 16324 Day
  Sex: Male

DRUGS (8)
  1. FASENRA [Suspect]
     Active Substance: BENRALIZUMAB
     Indication: Asthma prophylaxis
     Dosage: 30MG/ML EVERY FOUR WEEKS
     Route: 058
     Dates: start: 20230706
  2. ALBUTEROL [Concomitant]
     Active Substance: ALBUTEROL
     Dosage: NEB 0.083%;
  3. ANDROGEL [Concomitant]
     Active Substance: TESTOSTERONE
  4. ENTRESTO [Concomitant]
     Active Substance: SACUBITRIL\VALSARTAN
     Dosage: 24-26MG
  5. EPIPEN [Concomitant]
     Active Substance: EPINEPHRINE
     Dosage: PAK 0.3MG
  6. FLUTICASONE [Concomitant]
     Active Substance: FLUTICASONE
     Dosage: SPR 5WCG
  7. LORAZEPAM [Concomitant]
     Active Substance: LORAZEPAM
  8. XOLAIR [Concomitant]
     Active Substance: OMALIZUMAB

REACTIONS (1)
  - Death [Fatal]

NARRATIVE: CASE EVENT DATE: 20231201
